FAERS Safety Report 12226546 (Version 1)
Quarter: 2016Q1

REPORT INFORMATION
  Report Type: Spontaneous
  Country: US (occurrence: US)
  Receive Date: 20160331
  Receipt Date: 20160331
  Transmission Date: 20160526
  Serious: No
  Sender: FDA-Public Use
  Company Number: US-WARNER CHILCOTT, LLC-1050042

PATIENT
  Age: 38 Year
  Sex: Female

DRUGS (4)
  1. ARMOUR THYROID [Concomitant]
     Active Substance: THYROID, PORCINE
  2. FEMRING [Suspect]
     Active Substance: ESTRADIOL ACETATE
     Route: 067
     Dates: start: 20150511, end: 20150511
  3. HYDROCHLOROTHIAZIDE. [Concomitant]
     Active Substance: HYDROCHLOROTHIAZIDE
  4. PROGESTERONE. [Concomitant]
     Active Substance: PROGESTERONE

REACTIONS (2)
  - Device expulsion [Recovered/Resolved]
  - Abdominal pain lower [Recovered/Resolved]

NARRATIVE: CASE EVENT DATE: 20150511
